FAERS Safety Report 16723618 (Version 1)
Quarter: 2019Q3

REPORT INFORMATION
  Report Type: Spontaneous
  Country: US (occurrence: US)
  Receive Date: 20190703
  Receipt Date: 20190703
  Transmission Date: 20191005
  Serious: Yes (Death)
  Sender: FDA-Public Use
  Company Number: None

PATIENT
  Age: 62 Year
  Sex: Male

DRUGS (7)
  1. RANITIDINE. [Concomitant]
     Active Substance: RANITIDINE
  2. CAYSTON [Concomitant]
     Active Substance: AZTREONAM
  3. KAYLYDECO [Concomitant]
  4. TOBIEB [Concomitant]
  5. AZITHIROMYCIN [Concomitant]
  6. PULMOZYME SOL [Concomitant]
  7. NOXAFIL [Suspect]
     Active Substance: POSACONAZOLE
     Indication: CYSTIC FIBROSIS
     Route: 048
     Dates: start: 20190607

REACTIONS (1)
  - Death [None]

NARRATIVE: CASE EVENT DATE: 20190703
